FAERS Safety Report 8668687 (Version 3)
Quarter: 2012Q4

REPORT INFORMATION
  Report Type: 
  Country: NL (occurrence: NL)
  Receive Date: 20120717
  Receipt Date: 20121218
  Transmission Date: 20130627
  Serious: Yes (Death, Other)
  Sender: FDA-Public Use
  Company Number: NL-ELI_LILLY_AND_COMPANY-NL201207001083

PATIENT
  Age: 46 Year
  Sex: Female

DRUGS (4)
  1. CYMBALTA [Suspect]
     Indication: DEPRESSION
     Dosage: 15 mg, qd
     Route: 065
     Dates: start: 20120323, end: 20120326
  2. CYMBALTA [Suspect]
     Dosage: 30 mg, qd
     Dates: start: 20120327
  3. ZYPREXA [Suspect]
     Dosage: 2.5 mg, bid
     Route: 065
     Dates: start: 20111107, end: 201202
  4. VENLAFAXINE [Concomitant]
     Indication: DEPRESSION
     Dosage: 37.5 mg, unknown
     Dates: start: 20120315, end: 20120323

REACTIONS (2)
  - Completed suicide [Fatal]
  - Suicidal ideation [Unknown]
